FAERS Safety Report 16366627 (Version 1)
Quarter: 2019Q2

REPORT INFORMATION
  Report Type: Report from Study
  Country: US (occurrence: US)
  Receive Date: 20190529
  Receipt Date: 20190529
  Transmission Date: 20190711
  Serious: Yes (Hospitalization)
  Sender: FDA-Public Use
  Company Number: US-B.I. PHARMACEUTICALS,INC./RIDGEFIELD-2018-BI-057953

PATIENT
  Sex: Female

DRUGS (3)
  1. OFEV [Suspect]
     Active Substance: NINTEDANIB
     Route: 048
     Dates: start: 20171109
  2. OFEV [Suspect]
     Active Substance: NINTEDANIB
     Indication: IDIOPATHIC PULMONARY FIBROSIS
     Route: 048
     Dates: start: 20170911
  3. OFEV [Suspect]
     Active Substance: NINTEDANIB
     Route: 048

REACTIONS (11)
  - Gallbladder operation [Unknown]
  - Blood electrolytes decreased [Unknown]
  - Blood magnesium decreased [Unknown]
  - Intervertebral disc protrusion [Unknown]
  - Dehydration [Unknown]
  - Blood potassium decreased [Unknown]
  - Lung disorder [Unknown]
  - Blood iron decreased [Unknown]
  - Diarrhoea [Unknown]
  - Weight decreased [Unknown]
  - Gastric ulcer haemorrhage [Unknown]
